FAERS Safety Report 17884763 (Version 1)
Quarter: 2020Q2

REPORT INFORMATION
  Report Type: Spontaneous
  Country: DE (occurrence: DE)
  Receive Date: 20200611
  Receipt Date: 20200611
  Transmission Date: 20200714
  Serious: Yes (Life-Threatening, Hospitalization)
  Sender: FDA-Public Use
  Company Number: NVSC2020DE162048

PATIENT
  Age: 53 Year
  Sex: Male

DRUGS (1)
  1. ACETYLSALICYLIC ACID [Suspect]
     Active Substance: ASPIRIN
     Indication: PRODUCT USED FOR UNKNOWN INDICATION
     Dosage: 500 MG, TID(1-1-1-0)
     Route: 065

REACTIONS (6)
  - Fatigue [Unknown]
  - Pallor [Unknown]
  - Tachycardia [Unknown]
  - Pyrexia [Unknown]
  - General physical health deterioration [Unknown]
  - Haematochezia [Unknown]
